FAERS Safety Report 16154800 (Version 1)
Quarter: 2019Q2

REPORT INFORMATION
  Report Type: Spontaneous
  Country: FR (occurrence: FR)
  Receive Date: 20190403
  Receipt Date: 20190403
  Transmission Date: 20190711
  Serious: Yes (Hospitalization)
  Sender: FDA-Public Use
  Company Number: FR-TEVA-2019-FR-1032609

PATIENT
  Age: 79 Year
  Sex: Female

DRUGS (6)
  1. VIMPAT [Suspect]
     Active Substance: LACOSAMIDE
     Indication: EPILEPSY
     Dosage: 150 MILLIGRAM DAILY;
     Route: 048
     Dates: start: 20181024, end: 20181121
  2. ALEPSAL 50 MG, COMPRIM? (ATROPA BELLADONNA\CAFFEINE\PHENOBARBITAL) [Suspect]
     Active Substance: ATROPA BELLADONNA\CAFFEINE\PHENOBARBITAL
     Indication: EPILEPSY
     Dosage: 50 MILLIGRAM DAILY;
     Route: 048
     Dates: start: 20181024
  3. DAFALGAN [Concomitant]
     Active Substance: ACETAMINOPHEN
     Indication: PAIN
     Dosage: 4 GRAM DAILY;
     Route: 048
  4. LAMOTRIGINE. [Suspect]
     Active Substance: LAMOTRIGINE
     Indication: EPILEPSY
     Dosage: 500 MILLIGRAM DAILY;
     Route: 048
     Dates: start: 20181024
  5. ALEPSAL 100 MG, COMPRIM? (ATROPA BELLADONNA\CAFFEINE\PHENOBARBITAL) [Suspect]
     Active Substance: ATROPA BELLADONNA\CAFFEINE\PHENOBARBITAL
     Indication: EPILEPSY
     Dosage: 100 MILLIGRAM DAILY;
     Route: 048
     Dates: start: 20181024
  6. KEPPRA [Suspect]
     Active Substance: LEVETIRACETAM
     Indication: EPILEPSY
     Dosage: 2 GRAM DAILY;
     Route: 048
     Dates: start: 20181024

REACTIONS (1)
  - Vertigo [Recovered/Resolved]

NARRATIVE: CASE EVENT DATE: 20181024
